FAERS Safety Report 7146565-0 (Version None)
Quarter: 2010Q4

REPORT INFORMATION
  Report Type: 
  Country: None (occurrence: None)
  Receive Date: 20101208
  Receipt Date: 20101130
  Transmission Date: 20110411
  Serious: Yes (Other)
  Sender: FDA-Public Use
  Company Number: FR-PFIZER INC-2010160146

PATIENT
  Age: 36 Year
  Sex: Female

DRUGS (4)
  1. LYRICA [Suspect]
     Indication: NEURALGIA
     Dosage: 50 MG, 1X/DAY IN THE EVENING
     Route: 048
     Dates: start: 20101123
  2. HUMIRA [Concomitant]
     Indication: ANKYLOSING SPONDYLITIS
  3. ARCOXIA [Concomitant]
     Indication: ANKYLOSING SPONDYLITIS
  4. DAFALGAN CODEINE [Concomitant]
     Indication: PAIN

REACTIONS (5)
  - HYPERSENSITIVITY [None]
  - PALATAL OEDEMA [None]
  - RASH [None]
  - RESPIRATORY DISORDER [None]
  - SPEECH DISORDER [None]
